FAERS Safety Report 21052412 (Version 1)
Quarter: 2022Q3

REPORT INFORMATION
  Report Type: Spontaneous
  Country: US (occurrence: None)
  Receive Date: 20220706
  Receipt Date: 20220706
  Transmission Date: 20221026
  Serious: Yes (Death, Life-Threatening, Hospitalization)
  Sender: FDA-Public Use
  Company Number: None

PATIENT
  Age: 66 Year
  Sex: Female
  Weight: 68.1 kg

DRUGS (2)
  1. NIVOLUMAB [Suspect]
     Active Substance: NIVOLUMAB
     Indication: Metastatic renal cell carcinoma
     Dosage: FREQUENCY : EVERY THREE WEEKS;?
     Route: 042
     Dates: start: 20220328, end: 20220418
  2. ABATACEPT [Suspect]
     Active Substance: ABATACEPT
     Indication: Myocarditis
     Dosage: OTHER FREQUENCY : ONCE, THEN 956 MG;?
     Route: 042
     Dates: start: 20220426, end: 20220430

REACTIONS (13)
  - Hypertransaminasaemia [None]
  - Cardiogenic shock [None]
  - Acute respiratory failure [None]
  - Acute kidney injury [None]
  - Myocarditis [None]
  - Atrioventricular block [None]
  - Procedural complication [None]
  - Cardiac perforation [None]
  - Haemothorax [None]
  - Intentional product use issue [None]
  - Hypoxia [None]
  - Hypotension [None]
  - General physical health deterioration [None]

NARRATIVE: CASE EVENT DATE: 20220328
